FAERS Safety Report 5691853-8 (Version None)
Quarter: 2008Q2

REPORT INFORMATION
  Report Type: 
  Country: None (occurrence: None)
  Receive Date: 20080401
  Receipt Date: 20080401
  Transmission Date: 20081010
  Serious: Yes (Other)
  Sender: FDA-Public Use
  Company Number: None

PATIENT
  Sex: Male
  Weight: 13.6079 kg

DRUGS (2)
  1. SINGULAIR [Suspect]
     Indication: ASTHMA
     Dosage: 1 DAILY PO
     Route: 048
     Dates: start: 20060415, end: 20080330
  2. PULMICORT [Suspect]
     Indication: ASTHMA
     Dosage: 2-4X PRN DAILY OTHER
     Route: 050
     Dates: start: 20051115, end: 20080330

REACTIONS (19)
  - ABNORMAL BEHAVIOUR [None]
  - AGGRESSION [None]
  - APNOEA [None]
  - ASTHENIA [None]
  - ASTHMA [None]
  - AUTISM [None]
  - AUTISM SPECTRUM DISORDER [None]
  - CHOKING [None]
  - DYSPNOEA [None]
  - EMOTIONAL DISORDER [None]
  - FATIGUE [None]
  - GASTROOESOPHAGEAL REFLUX DISEASE [None]
  - INABILITY TO CRAWL [None]
  - MOOD ALTERED [None]
  - NASOPHARYNGITIS [None]
  - NO THERAPEUTIC RESPONSE [None]
  - SNORING [None]
  - SPEECH DISORDER [None]
  - VOMITING [None]
